FAERS Safety Report 8806743 (Version 1)
Quarter: 2012Q4

REPORT INFORMATION
  Report Type: Spontaneous
  Country: GB (occurrence: None)
  Receive Date: 20120919
  Receipt Date: 20120919
  Transmission Date: 20130627
  Serious: Yes (Other)
  Sender: FDA-Public Use
  Company Number: GB-1194109

PATIENT
  Age: 82 Year
  Sex: Female

DRUGS (4)
  1. MAXIDEX [Suspect]
  2. LOTEMAX [Suspect]
     Dates: start: 201006
  3. PREDNISOLONE [Suspect]
  4. TIMOLOL [Suspect]

REACTIONS (1)
  - Diabetes mellitus [None]
